FAERS Safety Report 4582938-8 (Version None)
Quarter: 2005Q1

REPORT INFORMATION
  Report Type: 
  Country: None (occurrence: None)
  Receive Date: 20050215
  Receipt Date: 20050210
  Transmission Date: 20050727
  Serious: Yes (Death, Congenital Anomaly)
  Sender: FDA-Public Use
  Company Number: PHBS2005NL02129

PATIENT
  Sex: Male

DRUGS (12)
  1. ANAFRANIL [Suspect]
     Route: 064
  2. DICLOFENAC SODIUM [Suspect]
     Route: 064
  3. LEVOTHYROXINE [Concomitant]
     Route: 064
  4. ACETAMINOPHEN [Concomitant]
     Route: 064
  5. TRAMADOL HCL [Concomitant]
     Route: 064
  6. LEVOMEPROMAZINE [Concomitant]
     Route: 064
  7. FENTANYL [Concomitant]
     Route: 064
  8. LACTITOL [Concomitant]
     Route: 064
  9. NITROFURANTOIN [Concomitant]
     Route: 064
  10. AMOXICILLIN W/CLAVULANIC ACID [Concomitant]
     Route: 064
  11. HYDROXYZINE [Concomitant]
     Route: 064
  12. FLUVOXAMINE MALEATE [Concomitant]
     Route: 064

REACTIONS (10)
  - CONGENITAL HYDROCEPHALUS [None]
  - DEAFNESS CONGENITAL [None]
  - DRUG EXPOSURE DURING PREGNANCY [None]
  - EAR MALFORMATION [None]
  - MICROGNATHIA [None]
  - NECK DEFORMITY [None]
  - NEONATAL APNOEIC ATTACK [None]
  - PREAURICULAR CYST [None]
  - RETROGNATHIA [None]
  - RIB DEFORMITY [None]
